FAERS Safety Report 16968650 (Version 1)
Quarter: 2019Q4

REPORT INFORMATION
  Report Type: Spontaneous
  Country: US (occurrence: US)
  Receive Date: 20191029
  Receipt Date: 20191029
  Transmission Date: 20200122
  Serious: No
  Sender: FDA-Public Use
  Company Number: US-JNJFOC-20191032266

PATIENT
  Sex: Female
  Weight: 88.53 kg

DRUGS (2)
  1. PEPCID AC [Suspect]
     Active Substance: FAMOTIDINE
     Indication: GASTROOESOPHAGEAL REFLUX DISEASE
     Dosage: 1 TABLET A DAY ONCE A DAY BEFORE BREAKFAST.?DATE PRODUCT LAST ADMINISTERED: 21/OCT/2019
     Route: 048
     Dates: start: 20191018
  2. PEPCID AC [Suspect]
     Active Substance: FAMOTIDINE
     Indication: ULCER

REACTIONS (3)
  - Dizziness [Unknown]
  - Wrong product administered [Unknown]
  - Off label use [Unknown]
